FAERS Safety Report 5711192-6 (Version None)
Quarter: 2008Q2

REPORT INFORMATION
  Report Type: 
  Country: None (occurrence: None)
  Receive Date: 20080421
  Receipt Date: 20080414
  Transmission Date: 20081010
  Serious: Yes (Death)
  Sender: FDA-Public Use
  Company Number: FR-AVENTIS-200811401FR

PATIENT
  Age: 86 Year
  Sex: Male

DRUGS (16)
  1. OFLOCET                            /00731801/ [Suspect]
     Route: 048
     Dates: start: 20080220, end: 20080225
  2. DOLIPRANE [Suspect]
     Route: 048
     Dates: start: 20080207, end: 20080301
  3. LOVENOX [Suspect]
     Route: 058
     Dates: start: 20080214, end: 20080225
  4. CEFTRIAXONE DAKOTA                 /00672201/ [Suspect]
     Route: 042
     Dates: start: 20080210, end: 20080222
  5. OFLOXACINE MERCK [Suspect]
     Route: 042
     Dates: start: 20080210, end: 20080220
  6. MOTILYO [Suspect]
     Indication: NAUSEA
     Dosage: DOSE: 10 TO 30
     Route: 048
     Dates: start: 20080207, end: 20080226
  7. CASODEX [Suspect]
     Route: 048
     Dates: start: 20080211, end: 20080301
  8. ZOLADEX [Suspect]
     Route: 058
     Dates: start: 20080211, end: 20080211
  9. TADENAN                            /00628801/ [Suspect]
     Route: 048
     Dates: start: 20080125, end: 20080226
  10. SEROPRAM [Concomitant]
     Route: 048
     Dates: end: 20080301
  11. TRIATEC                            /00885601/ [Concomitant]
     Route: 048
     Dates: start: 20071030, end: 20080301
  12. ISOPTIN [Concomitant]
     Route: 048
     Dates: start: 20071030, end: 20080301
  13. KARDEGIC                           /00002703/ [Concomitant]
     Route: 048
     Dates: start: 20071030, end: 20080301
  14. PERMIXON                           /00833501/ [Concomitant]
     Route: 048
     Dates: start: 20080124, end: 20080125
  15. TAZOCILLINE [Concomitant]
     Dates: start: 20080225, end: 20080301
  16. GENTAMICIN [Concomitant]
     Dates: start: 20080225, end: 20080301

REACTIONS (1)
  - AGRANULOCYTOSIS [None]
